FAERS Safety Report 23173490 (Version 2)
Quarter: 2023Q4

REPORT INFORMATION
  Report Type: Spontaneous
  Country: US (occurrence: US)
  Receive Date: 20231111
  Receipt Date: 20231117
  Transmission Date: 20240109
  Serious: No
  Sender: FDA-Public Use
  Company Number: US-ABBVIE-5486478

PATIENT
  Age: 19 Year
  Sex: Female

DRUGS (1)
  1. HUMIRA [Suspect]
     Active Substance: ADALIMUMAB
     Indication: Crohn^s disease
     Dosage: FORM STRENGTH: 40 MILLIGRAM?FREQUENCY TEXT: UNKNOWN
     Route: 058

REACTIONS (4)
  - Illness [Unknown]
  - Device issue [Not Recovered/Not Resolved]
  - Nasopharyngitis [Unknown]
  - Aphonia [Unknown]

NARRATIVE: CASE EVENT DATE: 20231104
